FAERS Safety Report 15398432 (Version 1)
Quarter: 2018Q3

REPORT INFORMATION
  Report Type: Spontaneous
  Country: US (occurrence: US)
  Receive Date: 20180918
  Receipt Date: 20180918
  Transmission Date: 20181010
  Serious: Yes (Hospitalization, Other)
  Sender: FDA-Public Use
  Company Number: US-INDIVIOR LIMITED-INDV-114063-2018

PATIENT
  Sex: Female
  Weight: 2.97 kg

DRUGS (8)
  1. CITRULLINE [Suspect]
     Active Substance: CITRULLINE
     Indication: PRODUCT USED FOR UNKNOWN INDICATION
     Dosage: UNK
     Route: 064
  2. NICOTINE. [Suspect]
     Active Substance: NICOTINE
     Indication: PRODUCT USED FOR UNKNOWN INDICATION
     Dosage: UNK
     Route: 064
     Dates: start: 2017, end: 201711
  3. SUBUTEX [Suspect]
     Active Substance: BUPRENORPHINE HYDROCHLORIDE
     Indication: DRUG DEPENDENCE
     Dosage: 20 MG, 2.5 TABLETS TWICE A DAY (FIRST 2 MONTHS OF PREGNANCY)
     Route: 064
     Dates: start: 2017, end: 2017
  4. SUBOXONE [Suspect]
     Active Substance: BUPRENORPHINE HYDROCHLORIDE\NALOXONE HYDROCHLORIDE
     Indication: DRUG DEPENDENCE
     Dosage: UNK
     Route: 064
     Dates: start: 2017, end: 2017
  5. SUBUTEX [Suspect]
     Active Substance: BUPRENORPHINE HYDROCHLORIDE
     Dosage: UNK, DECREASED DOSE TO 2 TABLETS FOR THIRD MONTH
     Route: 064
     Dates: start: 2017
  6. SUBUTEX [Suspect]
     Active Substance: BUPRENORPHINE HYDROCHLORIDE
     Dosage: UNK, ONE TABLET
     Route: 064
  7. SUBUTEX [Suspect]
     Active Substance: BUPRENORPHINE HYDROCHLORIDE
     Dosage: 1 AND HALF TABLET FOR THE FOURTH MONTH
     Route: 064
  8. ACYCLOVIR                          /00587301/ [Suspect]
     Active Substance: ACYCLOVIR
     Indication: HEPATITIS C
     Dosage: UNK, DAILY
     Route: 064

REACTIONS (12)
  - Diarrhoea neonatal [Unknown]
  - Adverse event [Unknown]
  - Body temperature increased [Unknown]
  - Neonatal disorder [Unknown]
  - Drug withdrawal syndrome neonatal [Unknown]
  - Poor feeding infant [Recovered/Resolved]
  - Skin discolouration [Unknown]
  - Tremor neonatal [Unknown]
  - Sneezing [Unknown]
  - Foetal exposure during pregnancy [Recovered/Resolved]
  - Jaundice neonatal [Unknown]
  - Restlessness [Unknown]

NARRATIVE: CASE EVENT DATE: 2017
